FAERS Safety Report 5888160-7 (Version None)
Quarter: 2008Q3

REPORT INFORMATION
  Report Type: 
  Country: None (occurrence: None)
  Receive Date: 20080918
  Receipt Date: 20080909
  Transmission Date: 20090109
  Serious: Yes (Hospitalization)
  Sender: FDA-Public Use
  Company Number: US-ASTRAZENECA-2008AC02440

PATIENT
  Age: 20 Month
  Sex: Male

DRUGS (1)
  1. FELODIPINE [Suspect]

REACTIONS (4)
  - ACCIDENTAL DRUG INTAKE BY CHILD [None]
  - HYPERTENSION [None]
  - RASH MACULAR [None]
  - TACHYCARDIA [None]
